FAERS Safety Report 14586583 (Version 1)
Quarter: 2018Q1

REPORT INFORMATION
  Report Type: Spontaneous
  Country: US (occurrence: US)
  Receive Date: 20180301
  Receipt Date: 20180301
  Transmission Date: 20180509
  Serious: Yes (Other)
  Sender: FDA-Public Use
  Company Number: US-VALIDUS PHARMACEUTICALS LLC-US-2017VAL000445

PATIENT

DRUGS (2)
  1. LASIX [Suspect]
     Active Substance: FUROSEMIDE
     Indication: PRODUCT USED FOR UNKNOWN INDICATION
     Dosage: 20 MG, QD
  2. LASIX [Suspect]
     Active Substance: FUROSEMIDE
     Dosage: 10 MG, QD

REACTIONS (5)
  - Hypoaesthesia [Not Recovered/Not Resolved]
  - Somnolence [Not Recovered/Not Resolved]
  - Product physical issue [Unknown]
  - Dizziness [Not Recovered/Not Resolved]
  - Heart rate irregular [Not Recovered/Not Resolved]
